FAERS Safety Report 6561092-7 (Version None)
Quarter: 2010Q1

REPORT INFORMATION
  Report Type: 
  Country: None (occurrence: None)
  Receive Date: 20100130
  Receipt Date: 20091007
  Transmission Date: 20100710
  Serious: No
  Sender: FDA-Public Use
  Company Number: US-ABBOTT-09P-163-0601389-00

PATIENT
  Sex: Female
  Weight: 48.578 kg

DRUGS (1)
  1. HUMIRA [Suspect]
     Indication: PSORIASIS
     Dates: start: 20090901, end: 20090929

REACTIONS (5)
  - ARTHRALGIA [None]
  - HAEMOGLOBIN DECREASED [None]
  - LOCAL SWELLING [None]
  - PAIN [None]
  - WHITE BLOOD CELL COUNT INCREASED [None]
